FAERS Safety Report 8708396 (Version 2)
Quarter: 2013Q1

REPORT INFORMATION
  Report Type: Spontaneous
  Country: BR (occurrence: None)
  Receive Date: 20120719
  Receipt Date: 20130211
  Transmission Date: 20140127
  Serious: Yes (Hospitalization)
  Sender: FDA-Public Use
  Company Number: DSJ-2012-12267

PATIENT
  Age: 68 Year
  Sex: Male

DRUGS (2)
  1. BENICAR HCT [Suspect]
     Dosage: 20/12.5MG (1 IN 1 D), PER ORAL
     Route: 048
     Dates: start: 201203, end: 201206
  2. METFORMIN HYDROCHLORIDE [Concomitant]

REACTIONS (5)
  - OLIGURIA [None]
  - GAIT DISTURBANCE [None]
  - SPINAL OPERATION [None]
  - POST PROCEDURAL COMPLICATION [None]
  - PROCEDURAL PAIN [None]
